FAERS Safety Report 7601682-3 (Version None)
Quarter: 2011Q3

REPORT INFORMATION
  Report Type: 
  Country: None (occurrence: None)
  Receive Date: 20110711
  Receipt Date: 20110701
  Transmission Date: 20111222
  Serious: Yes (Other)
  Sender: FDA-Public Use
  Company Number: IE-ASTRAZENECA-2011SE39623

PATIENT
  Age: 70 Year

DRUGS (3)
  1. WARFARIN SODIUM [Suspect]
     Route: 065
  2. SEROQUEL XR [Suspect]
     Indication: SEDATION
     Route: 048
  3. SEROQUEL XR [Suspect]
     Indication: AGITATION
     Route: 048

REACTIONS (1)
  - PULMONARY EMBOLISM [None]
